FAERS Safety Report 18434776 (Version 3)
Quarter: 2020Q4

REPORT INFORMATION
  Report Type: Spontaneous
  Country: US (occurrence: US)
  Receive Date: 20201028
  Receipt Date: 20201216
  Transmission Date: 20210114
  Serious: Yes (Other)
  Sender: FDA-Public Use
  Company Number: US-ASTELLAS-2020US037501

PATIENT
  Age: 69 Year
  Sex: Female

DRUGS (6)
  1. TAMBOCOR [Suspect]
     Active Substance: FLECAINIDE ACETATE
     Indication: PRODUCT USED FOR UNKNOWN INDICATION
     Route: 048
     Dates: start: 202006
  2. CALCIUM [Concomitant]
     Active Substance: CALCIUM
     Indication: PRODUCT USED FOR UNKNOWN INDICATION
     Dosage: UNK UNK, UNKNOWN FREQ. [SOFT CHEW]
     Route: 065
  3. ASPIRIN [ACETYLSALICYLIC ACID] [Concomitant]
     Active Substance: ASPIRIN
     Indication: PRODUCT USED FOR UNKNOWN INDICATION
     Dosage: UNK UNK, ONCE DAILY [LOW DOSE]
     Route: 065
  4. MYRBETRIQ [Suspect]
     Active Substance: MIRABEGRON
     Indication: HYPERTONIC BLADDER
     Route: 048
     Dates: end: 20201015
  5. LEVOTHYROXINE. [Concomitant]
     Active Substance: LEVOTHYROXINE
     Indication: PRODUCT USED FOR UNKNOWN INDICATION
     Route: 065
  6. METOPROLOL. [Suspect]
     Active Substance: METOPROLOL
     Indication: PRODUCT USED FOR UNKNOWN INDICATION
     Dosage: 25 MG, ONCE DAILY [EXTENDED RELEASE [ER]
     Route: 065

REACTIONS (9)
  - Migraine [Unknown]
  - Supraventricular tachycardia [Recovering/Resolving]
  - Seasonal allergy [Unknown]
  - Atrial fibrillation [Recovering/Resolving]
  - Cardiac flutter [Recovering/Resolving]
  - Alopecia [Recovering/Resolving]
  - Drug interaction [Unknown]
  - Constipation [Unknown]
  - Palpitations [Unknown]

NARRATIVE: CASE EVENT DATE: 2020
